FAERS Safety Report 12508648 (Version 2)
Quarter: 2016Q3

REPORT INFORMATION
  Report Type: Spontaneous
  Country: BE (occurrence: BE)
  Receive Date: 20160629
  Receipt Date: 20160707
  Transmission Date: 20161109
  Serious: Yes (Hospitalization, Other)
  Sender: FDA-Public Use
  Company Number: BE-JNJFOC-20160621366

PATIENT
  Age: 6 Decade
  Sex: Female

DRUGS (2)
  1. FELDENE [Concomitant]
     Active Substance: PIROXICAM
     Indication: ANKYLOSING SPONDYLITIS
     Route: 048
     Dates: start: 20160524
  2. SIMPONI [Suspect]
     Active Substance: GOLIMUMAB
     Indication: ANKYLOSING SPONDYLITIS
     Route: 058
     Dates: start: 20110101, end: 20160414

REACTIONS (2)
  - Breast cancer [Unknown]
  - Breast cancer in situ [Unknown]

NARRATIVE: CASE EVENT DATE: 201504
